FAERS Safety Report 8099314-6 (Version None)
Quarter: 2012Q1

REPORT INFORMATION
  Report Type: 
  Country: None (occurrence: None)
  Receive Date: 20120131
  Receipt Date: 20120123
  Transmission Date: 20120608
  Serious: Yes (Hospitalization)
  Sender: FDA-Public Use
  Company Number: DK-PFIZER INC-2010038046

PATIENT
  Age: 65 Year
  Sex: Male

DRUGS (11)
  1. METOPROLOL SUCCINATE [Concomitant]
     Indication: HYPERTENSION
  2. HJERTEMAGNYL ^DAK^ [Concomitant]
     Indication: PROPHYLAXIS
  3. IBUMETIN [Concomitant]
     Indication: PAIN
  4. PREDNISOLONE [Suspect]
     Indication: PROSTATE CANCER
     Dosage: 5 MG, 2X/DAY
     Route: 048
     Dates: start: 20091223
  5. SUNITINIB MALATE [Suspect]
     Indication: PROSTATE CANCER
     Dosage: 37.5 MG, 1X/DAY
     Route: 048
     Dates: start: 20091223
  6. TRIMOPAN [Concomitant]
     Indication: PROPHYLAXIS
  7. PANTOLOC ^BYK MADAUS^ [Concomitant]
     Indication: PROPHYLAXIS
     Dosage: UNK
     Dates: start: 20090101
  8. VESICARE [Concomitant]
     Indication: URGE INCONTINENCE
     Dosage: UNK
     Dates: start: 20090401
  9. PARACETAMOL [Concomitant]
     Indication: PAIN
     Dosage: UNK
     Dates: start: 20090930
  10. ZOMETA [Concomitant]
     Indication: METASTASES TO BONE
     Dosage: UNK
     Dates: start: 20091015
  11. CALCIUM [Concomitant]
     Indication: METASTASES TO BONE

REACTIONS (1)
  - ORAL FUNGAL INFECTION [None]
